FAERS Safety Report 19683857 (Version 3)
Quarter: 2021Q4

REPORT INFORMATION
  Report Type: Spontaneous
  Country: JP (occurrence: JP)
  Receive Date: 20210811
  Receipt Date: 20211007
  Transmission Date: 20220303
  Serious: Yes (Hospitalization, Other)
  Sender: FDA-Public Use
  Company Number: JP-TAKEDA-2021TJP067939

PATIENT
  Age: 61 Year
  Sex: Female
  Weight: 58.5 kg

DRUGS (13)
  1. ALUNBRIG [Suspect]
     Active Substance: BRIGATINIB
     Indication: Non-small cell lung cancer stage IV
     Dosage: 90 MILLIGRAM, QD
     Route: 048
     Dates: start: 20210709, end: 20210715
  2. ALUNBRIG [Suspect]
     Active Substance: BRIGATINIB
     Dosage: 180 MILLIGRAM, QD
     Route: 048
     Dates: start: 20210716, end: 20210726
  3. LANTHANUM CARBONATE [Concomitant]
     Active Substance: LANTHANUM CARBONATE
     Dosage: 250 MILLIGRAM, TID
     Route: 048
     Dates: start: 20210717, end: 20210802
  4. MIYA-BM [Concomitant]
     Active Substance: CLOSTRIDIUM BUTYRICUM SPORES STRAIN M-55
     Dosage: 350 MILLIGRAM, TID
     Route: 048
     Dates: start: 20200618
  5. POTASSIUM CHLORIDE [Concomitant]
     Active Substance: POTASSIUM CHLORIDE
     Dosage: 600 MILLIGRAM, QD
     Route: 048
     Dates: start: 20210511
  6. ALFACALCIDOL [Concomitant]
     Active Substance: ALFACALCIDOL
     Dosage: 1.0 MICROGRAM, QD
     Route: 048
     Dates: start: 20200522
  7. CALCIUM CARBONATE [Concomitant]
     Active Substance: CALCIUM CARBONATE
     Dosage: 500 MILLIGRAM, QD
     Route: 048
     Dates: start: 20200714, end: 20210802
  8. NEXIUM [Concomitant]
     Active Substance: ESOMEPRAZOLE MAGNESIUM
     Dosage: 20 MILLIGRAM, QD
     Route: 048
     Dates: start: 20210514, end: 20210802
  9. HYPEN [Concomitant]
     Dosage: 200 MILLIGRAM, BID
     Route: 048
     Dates: start: 20210615, end: 20210802
  10. HYDROMORPHONE HYDROCHLORIDE [Concomitant]
     Active Substance: HYDROMORPHONE HYDROCHLORIDE
     Indication: Pain
     Dosage: 18 MILLIGRAM, QD
     Route: 048
     Dates: start: 20210517
  11. LEVOTHYROXINE SODIUM [Concomitant]
     Active Substance: LEVOTHYROXINE SODIUM
     Indication: Hypothyroidism
     Dosage: 50 MICROGRAM, BID
     Route: 048
     Dates: start: 20200522
  12. SYMPROIC [Concomitant]
     Active Substance: NALDEMEDINE
     Indication: Constipation
     Dosage: 0.2 MILLIGRAM, QD
     Route: 048
     Dates: start: 20210710
  13. MIROGABALIN BESILATE [Concomitant]
     Dosage: UNK
     Route: 048
     Dates: start: 20210714

REACTIONS (8)
  - Blood creatine phosphokinase increased [Unknown]
  - Eyelid ptosis [Recovering/Resolving]
  - Dysarthria [Recovering/Resolving]
  - Myoclonus [Recovered/Resolved]
  - Long QT syndrome [Unknown]
  - Lipase increased [Recovering/Resolving]
  - Urinary tract infection [Unknown]
  - Aspartate aminotransferase increased [Recovered/Resolved]

NARRATIVE: CASE EVENT DATE: 20210714
